FAERS Safety Report 6362107-1 (Version None)
Quarter: 2009Q3

REPORT INFORMATION
  Report Type: 
  Country: None (occurrence: None)
  Receive Date: 20090918
  Receipt Date: 20090911
  Transmission Date: 20100115
  Serious: Yes (Other)
  Sender: FDA-Public Use
  Company Number: BR-ELI_LILLY_AND_COMPANY-BR200904003435

PATIENT
  Age: 58 Year
  Sex: Male
  Weight: 84.807 kg

DRUGS (8)
  1. BYETTA [Suspect]
     Indication: TYPE 2 DIABETES MELLITUS
     Dosage: 10 MG, 2/D
     Route: 058
     Dates: start: 20080601, end: 20080630
  2. BYETTA [Suspect]
     Dosage: 10 UG, 2/D
     Route: 058
     Dates: start: 20080701, end: 20090415
  3. METFORMIN HCL [Concomitant]
     Indication: TYPE 2 DIABETES MELLITUS
     Dosage: UNK, UNKNOWN
     Route: 065
  4. EFFEXOR [Concomitant]
     Dosage: UNK, UNKNOWN
     Route: 065
  5. SELOZOK [Concomitant]
     Dosage: UNK, UNKNOWN
     Route: 065
  6. NATRILIX SR [Concomitant]
     Dosage: UNK, UNKNOWN
     Route: 065
  7. CRESTOR [Concomitant]
     Indication: DYSLIPIDAEMIA
  8. METOPROLOL TARTRATE [Concomitant]
     Indication: HYPERTENSION

REACTIONS (1)
  - HEPATIC STEATOSIS [None]
